FAERS Safety Report 8612428-4 (Version None)
Quarter: 2012Q3

REPORT INFORMATION
  Report Type: 
  Country: None (occurrence: None)
  Receive Date: 20120822
  Receipt Date: 20120816
  Transmission Date: 20120928
  Serious: Yes (Hospitalization)
  Sender: FDA-Public Use
  Company Number: FR-PFIZER INC-2012200310

PATIENT
  Age: 56 Year
  Sex: Male

DRUGS (4)
  1. ATORVASTATIN [Suspect]
     Indication: MYOCARDIAL ISCHAEMIA
     Dosage: 80 MG, UNK
     Route: 048
     Dates: start: 20110804, end: 20111115
  2. SIMVASTATIN [Suspect]
     Indication: MYOCARDIAL ISCHAEMIA
     Dosage: 20 MG, DAILY
     Route: 048
     Dates: start: 20111122, end: 20120220
  3. CRESTOR [Suspect]
     Dosage: 20 MG, DAILY
     Route: 048
     Dates: start: 20120320, end: 20120516
  4. SIMVASTATIN [Suspect]
     Dosage: 40 MG, DAILY
     Dates: start: 20120220, end: 20120320

REACTIONS (5)
  - NECK PAIN [None]
  - HEADACHE [None]
  - DRUG EFFECT DECREASED [None]
  - NEURALGIA [None]
  - AXONAL NEUROPATHY [None]
